FAERS Safety Report 5703578-0 (Version None)
Quarter: 2008Q2

REPORT INFORMATION
  Report Type: 
  Country: None (occurrence: None)
  Receive Date: 20080409
  Receipt Date: 20080326
  Transmission Date: 20081010
  Serious: Yes (Hospitalization)
  Sender: FDA-Public Use
  Company Number: 2008-02079

PATIENT
  Age: 77 Year
  Sex: Male

DRUGS (2)
  1. FENTANYL [Suspect]
     Indication: PAIN IN EXTREMITY
     Dosage: 1 PATCH, Q 3 DAYS, TRANSDERMAL
     Route: 062
     Dates: start: 20071229, end: 20071231
  2. MULTIPLE DRUGS-UNKNOWN [Suspect]

REACTIONS (5)
  - ACCIDENTAL OVERDOSE [None]
  - DRUG INTERACTION [None]
  - FALL [None]
  - GAIT DISTURBANCE [None]
  - PHARMACEUTICAL PRODUCT COMPLAINT [None]
